FAERS Safety Report 7367799-6 (Version None)
Quarter: 2011Q1

REPORT INFORMATION
  Report Type: 
  Country: None (occurrence: None)
  Receive Date: 20110322
  Receipt Date: 20110309
  Transmission Date: 20110831
  Serious: Yes (Other)
  Sender: FDA-Public Use
  Company Number: US-BAYER-2011-021987

PATIENT
  Sex: Female
  Weight: 63.492 kg

DRUGS (1)
  1. PHILLIPS' LIQUID GELS STOOL SOFTENER [Suspect]
     Indication: CONSTIPATION
     Dosage: COUNT SIZE 30S
     Route: 048

REACTIONS (1)
  - RECTAL HAEMORRHAGE [None]
